FAERS Safety Report 16245122 (Version 2)
Quarter: 2019Q2

REPORT INFORMATION
  Report Type: Spontaneous
  Country: US (occurrence: US)
  Receive Date: 20190426
  Receipt Date: 20190620
  Transmission Date: 20190711
  Serious: No
  Sender: FDA-Public Use
  Company Number: US-BAYER-2019-083852

PATIENT
  Age: 27 Year
  Sex: Female
  Weight: 97.14 kg

DRUGS (4)
  1. MIRENA [Suspect]
     Active Substance: LEVONORGESTREL
     Indication: CONTRACEPTION
  2. REGLAN [Concomitant]
     Active Substance: METOCLOPRAMIDE HYDROCHLORIDE
     Dosage: UNK
     Route: 048
     Dates: start: 20181119
  3. MIRENA [Suspect]
     Active Substance: LEVONORGESTREL
     Indication: CONTRACEPTION
     Dosage: 20 MCG/24HR, CONT
     Route: 015
     Dates: start: 20181001, end: 20190420
  4. VITAPEARL [Concomitant]
     Dosage: UNK UNK, QD
     Route: 048
     Dates: start: 20180102, end: 20190508

REACTIONS (4)
  - Coital bleeding [None]
  - Dyspareunia [None]
  - Device expulsion [Recovered/Resolved]
  - Menstruation irregular [None]

NARRATIVE: CASE EVENT DATE: 20190419
